FAERS Safety Report 8233995-9 (Version None)
Quarter: 2012Q1

REPORT INFORMATION
  Report Type: 
  Country: None (occurrence: None)
  Receive Date: 20120323
  Receipt Date: 20120312
  Transmission Date: 20120608
  Serious: Yes (Death, Life-Threatening, Hospitalization, Other)
  Sender: FDA-Public Use
  Company Number: 2012MA000001

PATIENT
  Age: 65 Year
  Sex: Female
  Weight: 64.184 kg

DRUGS (1)
  1. DIGOXIN [Suspect]
     Indication: PRODUCT USED FOR UNKNOWN INDICATION
     Dosage: 0.25 MG; QD; PO
     Route: 048
     Dates: start: 20051128, end: 20070915

REACTIONS (23)
  - CARDIAC MURMUR [None]
  - PALLOR [None]
  - MALAISE [None]
  - BLOOD CREATINE PHOSPHOKINASE INCREASED [None]
  - CARDIAC ARREST [None]
  - DYSPNOEA [None]
  - EXOSTOSIS [None]
  - LEFT VENTRICULAR HYPERTROPHY [None]
  - MITRAL VALVE STENOSIS [None]
  - AORTIC VALVE INCOMPETENCE [None]
  - ECONOMIC PROBLEM [None]
  - UNRESPONSIVE TO STIMULI [None]
  - VENTRICULAR HYPERTROPHY [None]
  - CALCINOSIS [None]
  - SCOLIOSIS [None]
  - BLOOD SODIUM DECREASED [None]
  - CARBON DIOXIDE DECREASED [None]
  - MITRAL VALVE INCOMPETENCE [None]
  - AORTIC STENOSIS [None]
  - TRICUSPID VALVE INCOMPETENCE [None]
  - BLOOD GLUCOSE INCREASED [None]
  - MYOCARDIAL INFARCTION [None]
  - INJURY [None]
